FAERS Safety Report 7353239 (Version 5)
Quarter: 2014Q1

REPORT INFORMATION
  Report Type: Spontaneous
  Country: US (occurrence: US)
  Receive Date: 20100413
  Receipt Date: 20140116
  Transmission Date: 20141002
  Serious: Yes (Other)
  Sender: FDA-Public Use
  Company Number: US-BAYER-201018636NA

PATIENT
  Age: 46 Year
  Sex: Female
  Weight: 72.56 kg

DRUGS (15)
  1. YASMIN [Suspect]
     Indication: DYSMENORRHOEA
     Dosage: UNK
     Route: 048
     Dates: start: 200401, end: 20080315
  2. YASMIN [Suspect]
     Indication: DYSMENORRHOEA
     Route: 048
     Dates: start: 2009
  3. OCELLA [Suspect]
     Indication: DYSMENORRHOEA
     Dosage: UNK
     Route: 048
     Dates: start: 2008, end: 2009
  4. ASCORBIC ACID [Concomitant]
  5. ALBUTEROL [Concomitant]
  6. LIPITOR [Concomitant]
  7. POTASSIUM [POTASSIUM] [Concomitant]
  8. CIPROFLOXACIN [Concomitant]
     Dosage: 250 MG, UNK
     Route: 048
  9. DICYCLOMINE [Concomitant]
     Dosage: 10 MG, UNK
     Route: 048
  10. PROMETHAZINE [Concomitant]
     Dosage: 25 MG, UNK
     Route: 048
  11. TUSSIONEX [Concomitant]
     Route: 048
  12. AZITHROMYCIN [Concomitant]
     Dosage: 250 MG, UNK
     Route: 048
  13. DOXYCYCLINE [Concomitant]
     Dosage: 10 MG, UNK
     Route: 048
  14. METHYLPREDNISOLONE [Concomitant]
     Dosage: 4 MG, UNK
     Route: 048
  15. BENZONATATE [Concomitant]
     Dosage: 100 MG, UNK
     Route: 048

REACTIONS (11)
  - Gallbladder cholesterolosis [Unknown]
  - Cholecystitis chronic [Unknown]
  - Biliary dyskinesia [None]
  - Abdominal distension [Unknown]
  - Abdominal pain [Unknown]
  - Vomiting [Unknown]
  - Nausea [Unknown]
  - Convulsion [Unknown]
  - Gallbladder disorder [Unknown]
  - Weight increased [None]
  - Incisional hernia [None]
